FAERS Safety Report 19645404 (Version 1)
Quarter: 2021Q3

REPORT INFORMATION
  Report Type: Spontaneous
  Country: FR (occurrence: FR)
  Receive Date: 20210802
  Receipt Date: 20210802
  Transmission Date: 20211014
  Serious: Yes (Hospitalization, Disabling)
  Sender: FDA-Public Use
  Company Number: FR-ACCORD-233305

PATIENT
  Age: 25 Year
  Sex: Male
  Weight: 72 kg

DRUGS (15)
  1. ARIPIPRAZOLE. [Suspect]
     Active Substance: ARIPIPRAZOLE
     Indication: SCHIZOPHRENIA
     Dates: start: 20210408, end: 20210419
  2. LOXAPAC [Concomitant]
     Active Substance: LOXAPINE
     Indication: SCHIZOPHRENIA
     Dosage: 50 MG / 2 ML SOLUTION FOR INJECTION IN AMPOULE
     Route: 030
     Dates: start: 20210419
  3. TERCIAN [Suspect]
     Active Substance: CYAMEMAZINE
     Indication: SCHIZOPHRENIA
     Dosage: 40 MG / ML, ORAL DROPS SOLUTION
     Route: 048
     Dates: start: 20210424, end: 20210514
  4. TERCIAN [Suspect]
     Active Substance: CYAMEMAZINE
     Indication: SCHIZOPHRENIA
     Dosage: 40 MG / ML, ORAL DROPS SOLUTION
     Route: 048
     Dates: start: 20210531, end: 20210603
  5. RISPERIDONE. [Concomitant]
     Active Substance: RISPERIDONE
     Indication: SCHIZOPHRENIA
     Route: 048
     Dates: start: 20210423, end: 20210507
  6. TERCIAN [Suspect]
     Active Substance: CYAMEMAZINE
     Indication: SCHIZOPHRENIA
     Dosage: 40 MG / ML, ORAL DROPS SOLUTION
     Route: 048
     Dates: start: 20210525, end: 20210531
  7. TERCIAN [Suspect]
     Active Substance: CYAMEMAZINE
     Indication: SCHIZOPHRENIA
     Dosage: 40 MG / ML, ORAL DROPS SOLUTION
     Route: 048
     Dates: start: 20210519, end: 20210525
  8. HALDOL [Suspect]
     Active Substance: HALOPERIDOL
     Indication: SCHIZOPHRENIA
     Dosage: SOLUTION FOR INJECTION
     Route: 048
     Dates: start: 20210526, end: 20210526
  9. HALDOL [Suspect]
     Active Substance: HALOPERIDOL
     Indication: SCHIZOPHRENIA
     Dosage: 20 MG, BUCCAL TABLET
     Route: 048
     Dates: start: 20210507, end: 20210601
  10. TERCIAN [Suspect]
     Active Substance: CYAMEMAZINE
     Indication: SCHIZOPHRENIA
     Dosage: 40 MG / ML, ORAL DROPS SOLUTION
     Route: 048
     Dates: start: 20210423, end: 20210423
  11. TERCIAN [Suspect]
     Active Substance: CYAMEMAZINE
     Indication: SCHIZOPHRENIA
     Dosage: 40 MG / ML, ORAL DROPS SOLUTION
     Route: 048
     Dates: start: 20210603, end: 20210605
  12. LOXAPAC [Concomitant]
     Active Substance: LOXAPINE
     Indication: SCHIZOPHRENIA
     Dosage: ORAL SOLUTION
     Route: 030
     Dates: start: 20210408
  13. ABILIFY MAINTENA [Suspect]
     Active Substance: ARIPIPRAZOLE
     Indication: SCHIZOPHRENIA
     Dosage: 400 MG POWDER AND SOLVENT FOR PROLONGED?RELEASE?SUSPENSION FOR INJECTION
     Route: 030
     Dates: start: 20210413, end: 20210413
  14. RISPERIDONE. [Concomitant]
     Active Substance: RISPERIDONE
     Indication: SCHIZOPHRENIA
     Route: 048
     Dates: start: 20210419, end: 20210423
  15. TERCIAN [Suspect]
     Active Substance: CYAMEMAZINE
     Indication: SCHIZOPHRENIA
     Dosage: 40 MG / ML, ORAL DROPS SOLUTION
     Route: 048
     Dates: start: 20210514, end: 20210519

REACTIONS (1)
  - Hepatic cytolysis [Recovered/Resolved]

NARRATIVE: CASE EVENT DATE: 20210525
